FAERS Safety Report 5281056-3 (Version None)
Quarter: 2007Q1

REPORT INFORMATION
  Report Type: 
  Country: None (occurrence: None)
  Receive Date: 20061229
  Receipt Date: 20061018
  Transmission Date: 20070707
  Serious: No
  Sender: FDA-Public Use
  Company Number: 2006UW20048

PATIENT
  Age: 70 Year
  Sex: Female

DRUGS (6)
  1. CRESTOR [Suspect]
     Indication: BLOOD CHOLESTEROL INCREASED
     Dosage: 10 MG QD PO
     Route: 048
     Dates: start: 20060824, end: 20061001
  2. REQUIP [Suspect]
     Indication: RESTLESS LEGS SYNDROME
     Dosage: 1 MG, QD PO
     Route: 048
     Dates: start: 20060201
  3. OESTRADIOL [Concomitant]
  4. ESOMEPRAZOLE MAGNESIUM [Concomitant]
  5. DIOVAN HCT [Concomitant]
  6. VYTORIN [Concomitant]

REACTIONS (1)
  - LIVER FUNCTION TEST ABNORMAL [None]
